FAERS Safety Report 4544008-4 (Version None)
Quarter: 2005Q1

REPORT INFORMATION
  Report Type: 
  Country: None (occurrence: None)
  Receive Date: 20050104
  Receipt Date: 20041220
  Transmission Date: 20050727
  Serious: Yes (Hospitalization)
  Sender: FDA-Public Use
  Company Number: US-BRISTOL-MYERS SQUIBB COMPANY-12801197

PATIENT
  Age: 67 Year
  Sex: Male
  Weight: 80 kg

DRUGS (7)
  1. CETUXIMAB [Suspect]
     Indication: COLON CANCER
     Dosage: CYCLE 1 (START DATE 09-NOV-04): 400 MG/M2 DAY 1; 250 MG/M2 DAY 8. CYCLE 2: 250 MG/M2 DAY 1 + 8
     Route: 042
     Dates: start: 20041130, end: 20041130
  2. OXALIPLATIN [Suspect]
     Indication: COLON CANCER
     Dosage: CYCLE 1 (START DATE 09-NOV-04) + CYCLE 2 (START DATE 22-NOV-04): 85 MG/M2 DAY 1 (CYCLE=2 WKS)
     Route: 042
     Dates: start: 20041122, end: 20041122
  3. LEUCOVORIN [Suspect]
     Indication: COLON CANCER
     Dosage: CYCLE 1 + 2: 400 MG/M2 ON DAY 1 (CYCLE = 2 WEEKS)
     Route: 042
     Dates: start: 20041122, end: 20041122
  4. FLUOROURACIL [Suspect]
     Indication: COLON CANCER
     Dosage: CYCLE 1 + 2: 400 MG/M2 IV PUSH DAY 1, THEN 2400 MG/M2 CIV OVER 46-48 HRS
     Route: 042
     Dates: start: 20041122, end: 20041122
  5. COUMADIN [Suspect]
     Dates: end: 20041205
  6. TOPROL-XL [Concomitant]
  7. ZESTRIL [Concomitant]

REACTIONS (14)
  - ASTHENIA [None]
  - CONTUSION [None]
  - DEHYDRATION [None]
  - DERMATITIS ACNEIFORM [None]
  - DIZZINESS [None]
  - DYSPNOEA [None]
  - FALL [None]
  - FEBRILE NEUTROPENIA [None]
  - HAEMOGLOBIN DECREASED [None]
  - INTERNATIONAL NORMALISED RATIO INCREASED [None]
  - PNEUMONITIS [None]
  - SYNCOPE [None]
  - TACHYCARDIA [None]
  - WHITE BLOOD CELL COUNT DECREASED [None]
